FAERS Safety Report 4446974-4 (Version None)
Quarter: 2004Q3

REPORT INFORMATION
  Report Type: 
  Country: None (occurrence: None)
  Receive Date: 20040812
  Receipt Date: 20040505
  Transmission Date: 20050211
  Serious: Yes (Other)
  Sender: FDA-Public Use
  Company Number: USA040465895

PATIENT
  Sex: Male

DRUGS (2)
  1. CIALIS [Suspect]
  2. COCAINE [Concomitant]

REACTIONS (1)
  - PRIAPISM [None]
